FAERS Safety Report 5983150-8 (Version None)
Quarter: 2008Q4

REPORT INFORMATION
  Report Type: 
  Country: None (occurrence: None)
  Receive Date: 20081208
  Receipt Date: 20071214
  Transmission Date: 20090506
  Serious: No
  Sender: FDA-Public Use
  Company Number: US-BAYER-200714226BCC

PATIENT
  Age: 55 Year
  Sex: Male
  Weight: 57 kg

DRUGS (2)
  1. ALEVE-D SINUS + COLD [Suspect]
     Indication: NASOPHARYNGITIS
     Route: 048
  2. TYLENOL RAPID RELEASE [Concomitant]

REACTIONS (2)
  - INSOMNIA [None]
  - NASOPHARYNGITIS [None]
